FAERS Safety Report 9359157 (Version 2)
Quarter: 2013Q2

REPORT INFORMATION
  Report Type: Spontaneous
  Country: US (occurrence: US)
  Receive Date: 20130620
  Receipt Date: 20130627
  Transmission Date: 20140414
  Serious: Yes (Other)
  Sender: FDA-Public Use
  Company Number: US-UCBSA-088984

PATIENT
  Age: 21 Year
  Sex: Male

DRUGS (7)
  1. LEVETIRACETAM [Suspect]
     Indication: STATUS EPILEPTICUS
  2. VALPROATE [Concomitant]
     Indication: STATUS EPILEPTICUS
     Route: 042
  3. PHENYTOIN [Concomitant]
     Indication: STATUS EPILEPTICUS
  4. LORAZEPAM [Concomitant]
     Indication: STATUS EPILEPTICUS
  5. MIDAZOLAM [Concomitant]
     Indication: STATUS EPILEPTICUS
  6. MIDAZOLAM [Concomitant]
     Indication: STATUS EPILEPTICUS
     Dosage: }100MG/HR
     Route: 042
  7. AUGMENTIN [Concomitant]

REACTIONS (1)
  - Drug ineffective for unapproved indication [Unknown]
